FAERS Safety Report 18820934 (Version 1)
Quarter: 2021Q1

REPORT INFORMATION
  Report Type: Spontaneous
  Country: US (occurrence: US)
  Receive Date: 20210201
  Receipt Date: 20210201
  Transmission Date: 20210419
  Serious: No
  Sender: FDA-Public Use
  Company Number: None

PATIENT
  Age: 35 Year
  Sex: Male

DRUGS (10)
  1. BRAFTOVI [Suspect]
     Active Substance: ENCORAFENIB
     Route: 048
     Dates: start: 20200119
  2. MEKTOVI [Suspect]
     Active Substance: BINIMETINIB
     Indication: MALIGNANT MELANOMA
     Route: 048
     Dates: start: 20200119
  3. AMBIEN [Suspect]
     Active Substance: ZOLPIDEM TARTRATE
  4. MELOXICAM. [Suspect]
     Active Substance: MELOXICAM
  5. BACLOFEN. [Suspect]
     Active Substance: BACLOFEN
  6. PROZAC [Suspect]
     Active Substance: FLUOXETINE HYDROCHLORIDE
  7. ADDERALL [Suspect]
     Active Substance: AMPHETAMINE ASPARTATE\AMPHETAMINE SULFATE\DEXTROAMPHETAMINE SACCHARATE\DEXTROAMPHETAMINE SULFATE
  8. KEPPRA [Suspect]
     Active Substance: LEVETIRACETAM
  9. ADIPEX?P [Suspect]
     Active Substance: PHENTERMINE HYDROCHLORIDE
  10. ABILIFY [Suspect]
     Active Substance: ARIPIPRAZOLE

REACTIONS (2)
  - Brain neoplasm [None]
  - Cerebrovascular accident [None]
